FAERS Safety Report 8328344-1 (Version None)
Quarter: 2012Q2

REPORT INFORMATION
  Report Type: 
  Country: None (occurrence: None)
  Receive Date: 20120502
  Receipt Date: 20120426
  Transmission Date: 20120825
  Serious: Yes (Hospitalization)
  Sender: FDA-Public Use
  Company Number: ES-SANOFI-AVENTIS-2011SA071996

PATIENT
  Age: 70 Year
  Sex: Male
  Weight: 93.5 kg

DRUGS (24)
  1. CALCIUM [Concomitant]
     Dates: start: 20111014, end: 20111014
  2. CALCIUM [Concomitant]
     Dosage: 500 UNIT NOT REPORTED
     Dates: start: 20111014, end: 20111017
  3. DOCETAXEL [Suspect]
     Route: 042
     Dates: start: 20111024
  4. ATORVASTATIN CALCIUM [Concomitant]
     Dates: start: 20060101
  5. CALCIUM [Concomitant]
     Dates: start: 20111013, end: 20111014
  6. TIMOFTOL [Concomitant]
     Indication: OCULAR HYPERTENSION
  7. HEPARIN [Concomitant]
  8. TRAMADOL HCL [Concomitant]
  9. ACETAMINOPHEN [Concomitant]
  10. BLINDED THERAPY [Suspect]
     Route: 048
     Dates: start: 20111006
  11. OMEPRAZOLE [Concomitant]
     Dates: start: 20070101
  12. OMACOR [Concomitant]
     Dates: start: 20060101
  13. ACOVIL [Concomitant]
     Dates: start: 20060101
  14. CALCIUM CARBONATE [Concomitant]
  15. NOLOTIL [Concomitant]
  16. PRIMPERAN TAB [Concomitant]
     Indication: NAUSEA
     Dates: start: 20111006, end: 20111012
  17. TORSEMIDE [Concomitant]
     Indication: HYPERTENSION
     Dates: start: 20060101, end: 20111022
  18. DOCETAXEL [Suspect]
     Route: 042
     Dates: start: 20111005
  19. BISOPROLOL FUMARATE [Concomitant]
     Dates: start: 20060101
  20. FUROSEMIDA [Concomitant]
     Indication: HYPERTENSION
  21. LYRICA [Concomitant]
     Indication: PAIN
     Dates: start: 20070101
  22. NITROGLYCERIN [Concomitant]
     Dates: start: 20060101
  23. ASPIRIN [Concomitant]
     Dates: start: 20060101
  24. LORMETAZEPAM [Concomitant]
     Indication: INSOMNIA

REACTIONS (4)
  - NEUTROPENIA [None]
  - DIARRHOEA [None]
  - HYPOKALAEMIA [None]
  - HYPOPHOSPHATAEMIA [None]
